FAERS Safety Report 22216148 (Version 1)
Quarter: 2023Q2

REPORT INFORMATION
  Report Type: Spontaneous
  Country: PL (occurrence: PL)
  Receive Date: 20230417
  Receipt Date: 20230417
  Transmission Date: 20230722
  Serious: Yes (Other)
  Sender: FDA-Public Use
  Company Number: PL-URPL-DML-MLP.4401.1.45.2023

PATIENT
  Age: 72 Year
  Sex: Female
  Weight: 72 kg

DRUGS (3)
  1. OXALIPLATIN [Suspect]
     Active Substance: OXALIPLATIN
     Indication: Product used for unknown indication
     Dosage: 152.86 MILLIGRAM
     Route: 042
     Dates: start: 20221220
  2. FLUOROURACIL [Suspect]
     Active Substance: FLUOROURACIL
     Indication: Product used for unknown indication
     Dosage: 719.36 MILLIGRAM
     Route: 042
     Dates: start: 20221220
  3. FLUOROURACIL [Suspect]
     Active Substance: FLUOROURACIL
     Dosage: 1079.04 MILLIGRAM
     Route: 042
     Dates: start: 20221220

REACTIONS (2)
  - Embolism [Recovered/Resolved with Sequelae]
  - Neutropenia [Recovered/Resolved with Sequelae]

NARRATIVE: CASE EVENT DATE: 20230102
